FAERS Safety Report 10971989 (Version 2)
Quarter: 2015Q2

REPORT INFORMATION
  Report Type: Spontaneous
  Country: JP (occurrence: JP)
  Receive Date: 20150331
  Receipt Date: 20150501
  Transmission Date: 20150821
  Serious: Yes (Hospitalization)
  Sender: FDA-Public Use
  Company Number: JP-ELI_LILLY_AND_COMPANY-JP201503009055

PATIENT
  Age: 28 Year

DRUGS (5)
  1. ZYPREXA [Suspect]
     Active Substance: OLANZAPINE
     Indication: SCHIZOPHRENIA
     Dosage: UNK
     Route: 048
  2. ZYPREXA [Suspect]
     Active Substance: OLANZAPINE
     Dosage: 20 MG, QD, AFTER DELIVERY
     Route: 048
  3. RISPERIDONE. [Concomitant]
     Active Substance: RISPERIDONE
     Indication: SCHIZOPHRENIA
     Dosage: 4 MG, QD
     Route: 048
  4. ZYPREXA [Suspect]
     Active Substance: OLANZAPINE
     Dosage: 10 MG, QD
     Route: 048
  5. RISPERIDONE. [Concomitant]
     Active Substance: RISPERIDONE
     Dosage: 2 MG, QD, AFTER DELIVERY
     Route: 048

REACTIONS (13)
  - Agitation [Unknown]
  - Labour induction [Unknown]
  - Restlessness [Unknown]
  - Premature rupture of membranes [Unknown]
  - Soliloquy [Unknown]
  - Maternal exposure before pregnancy [Unknown]
  - Maternal exposure during pregnancy [Unknown]
  - Anxiety [Unknown]
  - Genital haemorrhage [Unknown]
  - Persecutory delusion [Unknown]
  - Fear [Unknown]
  - Exposure during breast feeding [Unknown]
  - Paranoia [Unknown]

NARRATIVE: CASE EVENT DATE: 20100521
